FAERS Safety Report 10406173 (Version 2)
Quarter: 2014Q4

REPORT INFORMATION
  Report Type: Spontaneous
  Country: US (occurrence: US)
  Receive Date: 20140825
  Receipt Date: 20141027
  Transmission Date: 20150528
  Serious: Yes (Hospitalization)
  Sender: FDA-Public Use
  Company Number: US-BAYER-2014-126896

PATIENT
  Age: 28 Year
  Sex: Female
  Weight: 74 kg

DRUGS (9)
  1. IMITREX [Concomitant]
     Active Substance: SUMATRIPTAN\SUMATRIPTAN SUCCINATE
     Indication: MIGRAINE
     Dosage: UNK
     Dates: start: 2004, end: 2012
  2. LORAZEPAM. [Concomitant]
     Active Substance: LORAZEPAM
     Dosage: UNK
     Dates: start: 20120820
  3. VICODIN [Concomitant]
     Active Substance: ACETAMINOPHEN\HYDROCODONE BITARTRATE
     Dosage: UNK
     Dates: start: 20120820
  4. MIRENA [Suspect]
     Active Substance: LEVONORGESTREL
     Indication: CONTRACEPTION
     Dosage: 20 MCG/24HR, CONT
     Route: 015
     Dates: start: 20110811, end: 20120912
  5. DOXYCYCLINE. [Concomitant]
     Active Substance: DOXYCYCLINE
     Dosage: UNK
     Dates: start: 20120828
  6. MIRENA [Suspect]
     Active Substance: LEVONORGESTREL
     Indication: CONTRACEPTION
     Dosage: 20 MCG/24HR, CONT
     Route: 015
     Dates: start: 20091002, end: 20100802
  7. MISOPROSTOL. [Concomitant]
     Active Substance: MISOPROSTOL
     Dosage: UNK
     Dates: start: 20120820
  8. ACYCLOVIR [ACICLOVIR SODIUM] [Concomitant]
     Indication: HERPES SIMPLEX VIRUS CONJUNCTIVITIS NEONATAL
     Dosage: UNK
     Dates: start: 20100308
  9. ATIVAN [Concomitant]
     Active Substance: LORAZEPAM

REACTIONS (3)
  - Uterine perforation [None]
  - Injury [None]
  - Pain [None]

NARRATIVE: CASE EVENT DATE: 201208
